FAERS Safety Report 6979653-X (Version None)
Quarter: 2010Q3

REPORT INFORMATION
  Report Type: 
  Country: None (occurrence: None)
  Receive Date: 20100910
  Receipt Date: 20100910
  Transmission Date: 20110219
  Serious: No
  Sender: FDA-Public Use
  Company Number: None

PATIENT
  Sex: Male
  Weight: 54.4316 kg

DRUGS (1)
  1. STRATTERA [Suspect]
     Dosage: 40 MG 1XDAILY
     Dates: start: 20091201, end: 20100601

REACTIONS (5)
  - ANGER [None]
  - ERECTION INCREASED [None]
  - INSOMNIA [None]
  - IRRITABILITY [None]
  - SOMNOLENCE [None]
